FAERS Safety Report 6708857-6 (Version None)
Quarter: 2010Q2

REPORT INFORMATION
  Report Type: 
  Country: None (occurrence: None)
  Receive Date: 20100504
  Receipt Date: 20100423
  Transmission Date: 20101027
  Serious: Yes (Other)
  Sender: FDA-Public Use
  Company Number: NO-JNJFOC-20100406479

PATIENT

DRUGS (2)
  1. REMICADE [Suspect]
     Indication: DRUG USE FOR UNKNOWN INDICATION
     Dosage: X 20 MONTHS
     Route: 042
  2. REMICADE [Suspect]
     Dosage: LAST 8 MONTHS
     Route: 042

REACTIONS (1)
  - NON-HODGKIN'S LYMPHOMA [None]
